FAERS Safety Report 6733340-1 (Version None)
Quarter: 2010Q2

REPORT INFORMATION
  Report Type: 
  Country: None (occurrence: None)
  Receive Date: 20100520
  Receipt Date: 20100513
  Transmission Date: 20101027
  Serious: Yes (Other)
  Sender: FDA-Public Use
  Company Number: AU-PFIZER INC-2010039221

PATIENT
  Age: 33 Year
  Sex: Male
  Weight: 55 kg

DRUGS (3)
  1. ZELDOX [Suspect]
     Indication: SCHIZOPHRENIFORM DISORDER
     Dosage: 40 MG, 2X/DAY
     Route: 048
     Dates: start: 20100317
  2. MIRTAZAPINE [Concomitant]
     Indication: DEPRESSION
     Dosage: 15 MG, 1X/DAY, NIGHT
     Route: 048
     Dates: start: 20100101, end: 20100317
  3. MIRTAZAPINE [Concomitant]
     Dosage: 30 MG, 1X/DAY, NIGHT
     Route: 048
     Dates: start: 20100317

REACTIONS (2)
  - FATIGUE [None]
  - MUSCULAR WEAKNESS [None]
